APPROVED DRUG PRODUCT: NEXIUM 24HR
Active Ingredient: ESOMEPRAZOLE MAGNESIUM
Strength: EQ 20MG BASE
Dosage Form/Route: CAPSULE, DELAYED RELEASE;ORAL
Application: N204655 | Product #001
Applicant: ASTRAZENECA LP
Approved: Mar 28, 2014 | RLD: Yes | RS: Yes | Type: OTC